FAERS Safety Report 4414203-3 (Version None)
Quarter: 2004Q3

REPORT INFORMATION
  Report Type: 
  Country: None (occurrence: None)
  Receive Date: 20040729
  Receipt Date: 20040726
  Transmission Date: 20050211
  Serious: Yes (Death)
  Sender: FDA-Public Use
  Company Number: TPG0T01250443

PATIENT
  Age: 88 Year
  Sex: Male

DRUGS (3)
  1. LEUPROLIDE ACETATE [Suspect]
     Indication: PROSTATE CANCER
     Dosage: SEE  IMAGE
     Route: 058
     Dates: start: 19970901, end: 19970901
  2. LEUPROLIDE ACETATE [Suspect]
     Indication: PROSTATE CANCER
     Dosage: SEE  IMAGE
     Route: 058
     Dates: start: 19971223, end: 19971223
  3. LEUPROLIDE ACETATE [Suspect]
     Indication: PROSTATE CANCER
     Dosage: SEE  IMAGE
     Route: 058
     Dates: start: 19970617

REACTIONS (1)
  - SHOCK [None]
